FAERS Safety Report 7425319-1 (Version None)
Quarter: 2011Q2

REPORT INFORMATION
  Report Type: 
  Country: None (occurrence: None)
  Receive Date: 20110420
  Receipt Date: 20110414
  Transmission Date: 20111010
  Serious: Yes (Death, Other)
  Sender: FDA-Public Use
  Company Number: PHEH2009US13536

PATIENT
  Sex: Female

DRUGS (2)
  1. AREDIA [Suspect]
  2. ZOMETA [Suspect]

REACTIONS (26)
  - MASS [None]
  - OVERDOSE [None]
  - MITRAL VALVE INCOMPETENCE [None]
  - CEREBRAL ISCHAEMIA [None]
  - METASTASES TO CENTRAL NERVOUS SYSTEM [None]
  - PAIN IN JAW [None]
  - METASTASES TO SPINE [None]
  - LYMPHADENOPATHY [None]
  - SKIN LESION [None]
  - AORTIC ARTERIOSCLEROSIS [None]
  - OSTEONECROSIS OF JAW [None]
  - METASTASES TO BONE [None]
  - PLEURAL EFFUSION [None]
  - SINUS DISORDER [None]
  - PULMONARY FIBROSIS [None]
  - DECUBITUS ULCER [None]
  - METASTASES TO LUNG [None]
  - RENAL DISORDER [None]
  - PERICARDIAL EFFUSION [None]
  - OSTEOLYSIS [None]
  - DEATH [None]
  - INJURY [None]
  - BONE PAIN [None]
  - OSTEOSCLEROSIS [None]
  - LIVER DISORDER [None]
  - TRICUSPID VALVE INCOMPETENCE [None]
